FAERS Safety Report 5711398-6 (Version None)
Quarter: 2008Q2

REPORT INFORMATION
  Report Type: 
  Country: None (occurrence: None)
  Receive Date: 20080418
  Receipt Date: 20080418
  Transmission Date: 20081010
  Serious: Yes (Hospitalization)
  Sender: FDA-Public Use
  Company Number: None

PATIENT
  Sex: Female
  Weight: 13.6 kg

DRUGS (5)
  1. CYTARABINE [Suspect]
     Dosage: 70 MG
  2. DEXAMETHASONE [Suspect]
     Dosage: 30 MG
  3. METHOTREXATE [Suspect]
     Dosage: 12 MG
  4. PEG-L-ASPARAGINASE (K-H) [Suspect]
     Dosage: 1650 IU
  5. VINCRISTINE SULFATE [Suspect]
     Dosage: 1 MG

REACTIONS (21)
  - ANOXIC ENCEPHALOPATHY [None]
  - BACILLUS INFECTION [None]
  - BACTERAEMIA [None]
  - BRAIN DEATH [None]
  - BRAIN OEDEMA [None]
  - CEREBROVASCULAR ACCIDENT [None]
  - DIFFERENTIAL WHITE BLOOD CELL COUNT ABNORMAL [None]
  - ENCEPHALOPATHY [None]
  - HAEMOGLOBIN DECREASED [None]
  - LOSS OF CONSCIOUSNESS [None]
  - LYMPHOCYTOSIS [None]
  - MEAN CELL VOLUME DECREASED [None]
  - NERVOUS SYSTEM DISORDER [None]
  - NEUTROPHIL COUNT DECREASED [None]
  - PLATELET COUNT DECREASED [None]
  - POSTURING [None]
  - PUPIL FIXED [None]
  - STARING [None]
  - STATUS EPILEPTICUS [None]
  - SUBARACHNOID HAEMORRHAGE [None]
  - WHITE BLOOD CELL COUNT DECREASED [None]
